FAERS Safety Report 6931226-0 (Version None)
Quarter: 2010Q3

REPORT INFORMATION
  Report Type: 
  Country: None (occurrence: None)
  Receive Date: 20100816
  Receipt Date: 20100802
  Transmission Date: 20110219
  Serious: Yes (Death, Other)
  Sender: FDA-Public Use
  Company Number: 2010AP001629

PATIENT
  Age: 45 Year
  Sex: Female

DRUGS (4)
  1. MIRTAZAPINE [Suspect]
  2. TRAMADOL HCL [Suspect]
  3. TETRAHYDROCANNABINOL (TETRAHYDROCANNABINOL) [Suspect]
  4. ETHANOL (ETHANOL) [Suspect]

REACTIONS (4)
  - ASPIRATION [None]
  - DRUG INTERACTION [None]
  - OBSTRUCTIVE AIRWAYS DISORDER [None]
  - SEROTONIN SYNDROME [None]
